FAERS Safety Report 4989526-X (Version None)
Quarter: 2006Q2

REPORT INFORMATION
  Report Type: 
  Country: None (occurrence: None)
  Receive Date: 20060426
  Receipt Date: 20060417
  Transmission Date: 20061013
  Serious: Yes (Disabling)
  Sender: FDA-Public Use
  Company Number: 2006052378

PATIENT
  Age: 53 Year
  Sex: Female
  Weight: 102.5129 kg

DRUGS (9)
  1. LIPITOR [Suspect]
     Indication: ILL-DEFINED DISORDER
     Dosage: 20 MG (1 D), ORAL
     Route: 048
     Dates: start: 19960101, end: 20060228
  2. BYETTA [Suspect]
     Indication: DIABETES MELLITUS NON-INSULIN-DEPENDENT
     Dosage: 5 MCG, 2 IN 1 D, SUBCUTANEOUS
     Route: 058
     Dates: start: 20060205
  3. METFORMIN [Concomitant]
  4. AVANDIA [Concomitant]
  5. NAPROXEN [Concomitant]
  6. HYDROCHLOROTHIAZIDE [Concomitant]
  7. NORVASC [Concomitant]
  8. SYNTHROID [Concomitant]
  9. ASPIRIN [Concomitant]

REACTIONS (6)
  - ABASIA [None]
  - HEPATIC ENZYME INCREASED [None]
  - JOINT DISLOCATION [None]
  - MUSCULAR WEAKNESS [None]
  - MYALGIA [None]
  - PAIN IN EXTREMITY [None]
